FAERS Safety Report 9702766 (Version 1)
Quarter: 2013Q4

REPORT INFORMATION
  Report Type: Spontaneous
  Country: US (occurrence: US)
  Receive Date: 20131121
  Receipt Date: 20131121
  Transmission Date: 20140711
  Serious: Yes (Hospitalization)
  Sender: FDA-Public Use
  Company Number: US-GLAXOSMITHKLINE-A0990106A

PATIENT
  Age: 63 Year
  Sex: Female

DRUGS (1)
  1. ADVAIR [Suspect]
     Indication: PRODUCT USED FOR UNKNOWN INDICATION

REACTIONS (2)
  - Nonspecific reaction [Unknown]
  - Ill-defined disorder [Unknown]
